FAERS Safety Report 12966284 (Version 1)
Quarter: 2016Q4

REPORT INFORMATION
  Report Type: Spontaneous
  Country: DZ (occurrence: DZ)
  Receive Date: 20161122
  Receipt Date: 20161122
  Transmission Date: 20170207
  Serious: Yes (Death)
  Sender: FDA-Public Use
  Company Number: DZ-BIOMARINAP-DZ-2016-111917

PATIENT

DRUGS (2)
  1. ALDURAZYME [Suspect]
     Active Substance: LARONIDASE
     Indication: MUCOPOLYSACCHARIDOSIS I
     Dosage: UNK
     Route: 042
     Dates: start: 2012
  2. ALDURAZYME [Suspect]
     Active Substance: LARONIDASE
     Dosage: 100 IU/KG, QW
     Route: 042
     Dates: start: 201505, end: 201607

REACTIONS (2)
  - Umbilical hernia [Fatal]
  - Disease complication [Fatal]

NARRATIVE: CASE EVENT DATE: 2016
